FAERS Safety Report 16622945 (Version 1)
Quarter: 2019Q3

REPORT INFORMATION
  Report Type: Spontaneous
  Country: FR (occurrence: FR)
  Receive Date: 20190723
  Receipt Date: 20190723
  Transmission Date: 20191004
  Serious: Yes (Hospitalization)
  Sender: FDA-Public Use
  Company Number: FR-MYLANLABS-2019M1068285

PATIENT
  Age: 86 Year
  Sex: Male

DRUGS (9)
  1. LEVOTHYROX [Suspect]
     Active Substance: LEVOTHYROXINE
     Indication: HYPOTHYROIDISM
     Dosage: UNK
     Route: 048
  2. AMLODIPINE [Suspect]
     Active Substance: AMLODIPINE BESYLATE
     Indication: HYPERTENSION
     Dosage: UNK
     Route: 048
  3. PREVISCAN                          /00789001/ [Suspect]
     Active Substance: FLUINDIONE
     Indication: ATRIAL FIBRILLATION
     Dosage: UNK
     Route: 048
  4. COVERSYL                           /00790702/ [Suspect]
     Active Substance: PERINDOPRIL
     Indication: HYPERTENSION
     Dosage: UNK
     Route: 048
  5. LASILIX                            /00032601/ [Suspect]
     Active Substance: FUROSEMIDE
     Indication: CHRONIC KIDNEY DISEASE
     Dosage: UNK
     Route: 048
  6. EFFERALGAN COD. [Suspect]
     Active Substance: ACETAMINOPHEN\CODEINE PHOSPHATE
     Indication: PAIN
     Dosage: UNK
     Route: 048
  7. EUPRESSYL                          /00631802/ [Suspect]
     Active Substance: URAPIDIL HYDROCHLORIDE
     Indication: HYPERTENSION
     Dosage: UNK
     Route: 048
  8. TEMERIT DUO [Suspect]
     Active Substance: HYDROCHLOROTHIAZIDE\NEBIVOLOL HYDROCHLORIDE
     Indication: HYPERTENSION
     Dosage: UNK
     Route: 048
  9. DEDROGYL [Suspect]
     Active Substance: CALCIFEDIOL
     Indication: CHRONIC KIDNEY DISEASE
     Dosage: UNK
     Route: 048

REACTIONS (2)
  - Dermatitis exfoliative generalised [Unknown]
  - Eczema [Unknown]

NARRATIVE: CASE EVENT DATE: 201406
